FAERS Safety Report 7822821-5 (Version None)
Quarter: 2011Q4

REPORT INFORMATION
  Report Type: 
  Country: None (occurrence: None)
  Receive Date: 20111018
  Receipt Date: 20101104
  Transmission Date: 20120403
  Serious: No
  Sender: FDA-Public Use
  Company Number: US-ASTRAZENECA-2010SE52687

PATIENT
  Age: 16 Year
  Sex: Female
  Weight: 69.4 kg

DRUGS (3)
  1. SINGULAIR [Concomitant]
     Indication: ASTHMA
  2. ASMANEX TWISTHALER [Concomitant]
     Indication: ASTHMA
  3. SYMBICORT [Suspect]
     Indication: ASTHMA
     Dosage: 160 MCG BID
     Route: 055
     Dates: start: 20101019, end: 20101020

REACTIONS (5)
  - CHEST DISCOMFORT [None]
  - TREMOR [None]
  - HYPERSENSITIVITY [None]
  - DYSPNOEA [None]
  - FATIGUE [None]
